FAERS Safety Report 19099664 (Version 1)
Quarter: 2021Q2

REPORT INFORMATION
  Report Type: Spontaneous
  Country: US (occurrence: US)
  Receive Date: 20210407
  Receipt Date: 20210407
  Transmission Date: 20210717
  Serious: Yes (Hospitalization)
  Sender: FDA-Public Use
  Company Number: US-PTC THERAPEUTICS, INC.-US-2020PTC000131

PATIENT
  Age: 10 Year
  Sex: Male

DRUGS (1)
  1. EMFLAZA [Suspect]
     Active Substance: DEFLAZACORT
     Indication: MUSCULAR DYSTROPHY
     Dosage: 15 MG, QOD
     Route: 048

REACTIONS (4)
  - Product dose omission issue [Unknown]
  - Off label use [Unknown]
  - Influenza [Unknown]
  - Vomiting [Unknown]

NARRATIVE: CASE EVENT DATE: 202002
